FAERS Safety Report 7499408-X (Version None)
Quarter: 2011Q2

REPORT INFORMATION
  Report Type: 
  Country: None (occurrence: None)
  Receive Date: 20110524
  Receipt Date: 20110511
  Transmission Date: 20111010
  Serious: Yes (Hospitalization, Other)
  Sender: FDA-Public Use
  Company Number: PHHY2011DE09021

PATIENT
  Sex: Female

DRUGS (5)
  1. EXTAVIA [Suspect]
     Dosage: 62.5 UG, QOD
     Route: 058
     Dates: start: 20101129
  2. IBUPROFEN [Concomitant]
     Indication: INFLUENZA LIKE ILLNESS
     Dosage: UNK
     Route: 048
     Dates: start: 20101129, end: 20110101
  3. EXTAVIA [Suspect]
     Indication: MULTIPLE SCLEROSIS
     Dosage: 250 UG/ML, QOD
     Route: 058
  4. ACETAMINOPHEN [Concomitant]
     Indication: INFLUENZA LIKE ILLNESS
     Dosage: UNK
     Route: 048
     Dates: start: 20110101, end: 20110201
  5. EXTAVIA [Suspect]
     Dosage: 125 UG, QOD
     Route: 058

REACTIONS (6)
  - VIRAL INFECTION [None]
  - DRUG EXPOSURE DURING PREGNANCY [None]
  - ABDOMINAL PAIN LOWER [None]
  - INFLUENZA LIKE ILLNESS [None]
  - ABORTION SPONTANEOUS [None]
  - PREGNANCY [None]
